FAERS Safety Report 4314272-5 (Version None)
Quarter: 2004Q1

REPORT INFORMATION
  Report Type: 
  Country: None (occurrence: None)
  Receive Date: 20040308
  Receipt Date: 20040224
  Transmission Date: 20041129
  Serious: Yes (Death)
  Sender: FDA-Public Use
  Company Number: HQWYE638111SEP03

PATIENT
  Age: 41 Year
  Sex: Female
  Weight: 92.16 kg

DRUGS (5)
  1. EFFEXOR [Suspect]
     Indication: DEPRESSION
     Dosage: SEE IMAGE, ORAL/ A LITTLE WHILE
     Route: 048
     Dates: start: 20020128
  2. DEXTROPROPOXYPHENE/PARACETAMOL (DEXTROPROPOXYPHENE/PARACETAMOL) [Concomitant]
  3. ORTHO CYCLEN (ETHINYLESTRADIOL/NORGESTIMATE) [Concomitant]
  4. ALLEGRA [Concomitant]
  5. FLONASE [Concomitant]

REACTIONS (11)
  - ACCIDENTAL OVERDOSE [None]
  - CHOKING [None]
  - CONVULSION [None]
  - DIZZINESS [None]
  - EPISTAXIS [None]
  - FEELING ABNORMAL [None]
  - HEADACHE [None]
  - INJURY ASPHYXIATION [None]
  - MOUTH HAEMORRHAGE [None]
  - PULMONARY CONGESTION [None]
  - PULMONARY OEDEMA [None]
